FAERS Safety Report 8231036-0 (Version None)
Quarter: 2012Q1

REPORT INFORMATION
  Report Type: 
  Country: None (occurrence: None)
  Receive Date: 20120323
  Receipt Date: 20120315
  Transmission Date: 20120608
  Serious: Yes (Hospitalization)
  Sender: FDA-Public Use
  Company Number: US-BAYER-2011-049286

PATIENT
  Age: 34 Year
  Sex: Female
  Weight: 68.027 kg

DRUGS (7)
  1. YAZ [Suspect]
  2. ONE A DAY MENS [VIT C,B5,D3,B12,B9,B3,B6,RETINOL,B2,B1 HCL,VIT E] [Concomitant]
     Dosage: UNK
     Dates: end: 20090626
  3. LOVAZA [Concomitant]
     Dosage: UNK
     Dates: end: 20090626
  4. HEPARIN [Concomitant]
     Indication: INTRACRANIAL VENOUS SINUS THROMBOSIS
     Dosage: UNK
     Dates: start: 20090626
  5. HEPARIN [Concomitant]
     Indication: CEREBRAL THROMBOSIS
  6. YAZ [Suspect]
     Indication: PREMENSTRUAL SYNDROME
     Dosage: UNK
     Dates: start: 20060808, end: 20090626
  7. IBUPROFEN [Concomitant]
     Indication: HEADACHE
     Dosage: UNK
     Dates: start: 20090601

REACTIONS (18)
  - COMMUNICATION DISORDER [None]
  - EMOTIONAL DISTRESS [None]
  - FEAR [None]
  - GENERAL PHYSICAL HEALTH DETERIORATION [None]
  - SPEECH DISORDER [None]
  - PAIN [None]
  - MIGRAINE [None]
  - AMNESIA [None]
  - PANIC REACTION [None]
  - FATIGUE [None]
  - CEREBRAL THROMBOSIS [None]
  - APHASIA [None]
  - DEPRESSED MOOD [None]
  - ANXIETY [None]
  - CEREBROVASCULAR ACCIDENT [None]
  - HYPOAESTHESIA [None]
  - INJURY [None]
  - ALOPECIA [None]
